FAERS Safety Report 5458971-0 (Version None)
Quarter: 2007Q3

REPORT INFORMATION
  Report Type: 
  Country: None (occurrence: None)
  Receive Date: 20070919
  Receipt Date: 20070913
  Transmission Date: 20080115
  Serious: Yes (Other)
  Sender: FDA-Public Use
  Company Number: US-ASTRAZENECA-2007UW21731

PATIENT
  Age: 87 Year
  Sex: Female
  Weight: 76.2 kg

DRUGS (11)
  1. ARIMIDEX [Suspect]
     Indication: BREAST CANCER
     Route: 048
     Dates: start: 20050101
  2. ATENOLOL [Concomitant]
  3. SYNTHROID [Concomitant]
  4. PEPTO BISMOL [Concomitant]
  5. AMBIEN [Concomitant]
  6. LIPITOR [Concomitant]
     Route: 048
  7. TOFRANIL [Concomitant]
  8. TOFRANIL [Concomitant]
  9. TOFRANIL [Concomitant]
  10. WELLBUTRIN [Concomitant]
  11. ZOLOFT [Concomitant]

REACTIONS (8)
  - ARTERIOSCLEROSIS [None]
  - CHEST DISCOMFORT [None]
  - CORONARY ARTERY DISEASE [None]
  - DECREASED APPETITE [None]
  - DYSPEPSIA [None]
  - FATIGUE [None]
  - HIATUS HERNIA [None]
  - WEIGHT DECREASED [None]
